FAERS Safety Report 5183839-7 (Version None)
Quarter: 2006Q4

REPORT INFORMATION
  Report Type: 
  Country: None (occurrence: None)
  Receive Date: 20061220
  Receipt Date: 20061211
  Transmission Date: 20070319
  Serious: Yes (Hospitalization)
  Sender: FDA-Public Use
  Company Number: FR-GLAXOSMITHKLINE-B0449927A

PATIENT
  Age: 50 Year
  Sex: Male

DRUGS (4)
  1. AUGMENTIN '125' [Suspect]
     Route: 065
     Dates: start: 20061020, end: 20061027
  2. PERINDOPRIL ERBUMINE [Concomitant]
     Indication: ESSENTIAL HYPERTENSION
     Route: 048
  3. AMLOR [Concomitant]
     Indication: ESSENTIAL HYPERTENSION
     Route: 048
  4. TAHOR [Concomitant]
     Indication: HYPERCHOLESTEROLAEMIA
     Route: 048

REACTIONS (7)
  - DERMATITIS EXFOLIATIVE [None]
  - EOSINOPHILIA [None]
  - FACE OEDEMA [None]
  - LYMPHADENOPATHY [None]
  - LYMPHOPENIA [None]
  - PRURITUS [None]
  - TOXIC SKIN ERUPTION [None]
